FAERS Safety Report 21734570 (Version 4)
Quarter: 2023Q2

REPORT INFORMATION
  Report Type: Report from Study
  Country: US (occurrence: US)
  Receive Date: 20221215
  Receipt Date: 20230627
  Transmission Date: 20230721
  Serious: Yes (Death, Hospitalization, Other)
  Sender: FDA-Public Use
  Company Number: US-OTSUKA-2022_045766

PATIENT
  Age: 82 Year
  Sex: Female
  Weight: 59.87 kg

DRUGS (11)
  1. CEDAZURIDINE\DECITABINE [Suspect]
     Active Substance: CEDAZURIDINE\DECITABINE
     Indication: Myelodysplastic syndrome
     Dosage: 1 DF (35 MG OF DECITABINE AND 100 MG OF CEDAZURIDINE), QD (DAYS 1 THROUGH 5 OF EACH 28 DAYS CYCLE)
     Route: 048
     Dates: start: 20220615
  2. CEDAZURIDINE\DECITABINE [Suspect]
     Active Substance: CEDAZURIDINE\DECITABINE
     Indication: Myelodysplastic syndrome with single lineage dysplasia
     Dosage: 1 DF (35 MG OF DECITABINE AND 100 MG OF CEDAZURIDINE), QD (DAYS 1 THROUGH 3 OF EACH 28 DAYS CYCLE)
     Route: 048
  3. CEDAZURIDINE\DECITABINE [Suspect]
     Active Substance: CEDAZURIDINE\DECITABINE
     Indication: 5q minus syndrome
     Dosage: 1 DF (35 MG OF DECITABINE AND 100 MG OF CEDAZURIDINE), QD (DAYS 1 THROUGH 2 OF EACH 28 DAYS CYCLE)
     Route: 048
  4. CRESEMBA [Suspect]
     Active Substance: ISAVUCONAZONIUM SULFATE
     Indication: Product used for unknown indication
     Dosage: UNK
     Route: 065
  5. VORICONAZOLE [Suspect]
     Active Substance: VORICONAZOLE
     Indication: Product used for unknown indication
     Dosage: UNK
     Route: 065
  6. VALACYCLOVIR [Concomitant]
     Active Substance: VALACYCLOVIR HYDROCHLORIDE
     Indication: Product used for unknown indication
     Dosage: UNK
     Route: 065
  7. PROLIA [Concomitant]
     Active Substance: DENOSUMAB
     Indication: Product used for unknown indication
     Dosage: UNK
     Route: 065
  8. TYLENOL EXTRA STRENGTH [Concomitant]
     Active Substance: ACETAMINOPHEN
     Indication: Product used for unknown indication
     Dosage: UNK
     Route: 065
  9. SCOPOLAMINE [Concomitant]
     Active Substance: SCOPOLAMINE
     Indication: Product used for unknown indication
     Dosage: UNK, TID (PATCH)
     Route: 065
  10. VITAMINS [Concomitant]
     Active Substance: VITAMINS
     Indication: Product used for unknown indication
     Dosage: UNK
     Route: 065
  11. LEVOFLOXACIN [Concomitant]
     Active Substance: LEVOFLOXACIN
     Indication: Product used for unknown indication
     Dosage: UNK
     Route: 065

REACTIONS (9)
  - Death [Fatal]
  - Neutropenic colitis [Unknown]
  - Infection [Recovered/Resolved]
  - Diarrhoea [Unknown]
  - Platelet count decreased [Unknown]
  - Blood iron increased [Unknown]
  - Illness [Unknown]
  - Weight decreased [Unknown]
  - Inappropriate schedule of product administration [Unknown]

NARRATIVE: CASE EVENT DATE: 20220615
